FAERS Safety Report 19315697 (Version 7)
Quarter: 2021Q4

REPORT INFORMATION
  Report Type: Spontaneous
  Country: JP (occurrence: JP)
  Receive Date: 20210527
  Receipt Date: 20211129
  Transmission Date: 20220303
  Serious: Yes (Hospitalization, Other)
  Sender: FDA-Public Use
  Company Number: JP-OTSUKA-2021_017654

PATIENT
  Age: 33 Year
  Sex: Male

DRUGS (9)
  1. SAMSCA [Suspect]
     Active Substance: TOLVAPTAN
     Indication: Congenital cystic kidney disease
     Dosage: 30MG DAILY DOSE
     Route: 048
     Dates: start: 20210515, end: 20210519
  2. SAMSCA [Suspect]
     Active Substance: TOLVAPTAN
     Dosage: 60MG DAILY DOSE
     Route: 048
     Dates: start: 20210510, end: 20210514
  3. SAMSCA [Suspect]
     Active Substance: TOLVAPTAN
     Dosage: 30 MG DAILY DOSE
     Route: 048
     Dates: start: 20210520, end: 20210520
  4. SAMSCA [Suspect]
     Active Substance: TOLVAPTAN
     Dosage: 60MG DAILY DOSE
     Route: 048
     Dates: start: 20210616, end: 20210713
  5. SAMSCA [Suspect]
     Active Substance: TOLVAPTAN
     Dosage: 75MG DAILY DOSE
     Route: 048
     Dates: start: 20210714, end: 20210907
  6. SAMSCA [Suspect]
     Active Substance: TOLVAPTAN
     Dosage: 15MG DAILY DOSE
     Route: 048
     Dates: start: 20210908, end: 20210921
  7. SAMSCA [Suspect]
     Active Substance: TOLVAPTAN
     Indication: Congenital cystic kidney disease
     Dosage: 7.5MG X 2 DAILY DOSE
     Route: 048
     Dates: start: 20210520, end: 20210520
  8. LOSARTAN POTASSIUM [Suspect]
     Active Substance: LOSARTAN POTASSIUM
     Indication: Product used for unknown indication
     Dosage: 25 MG, QD
     Route: 048
     Dates: start: 20210811, end: 20210907
  9. SERTRALINE HYDROCHLORIDE [Concomitant]
     Active Substance: SERTRALINE HYDROCHLORIDE
     Indication: Product used for unknown indication
     Dosage: 25 MG, QD
     Route: 048
     Dates: start: 201902

REACTIONS (4)
  - Retinal detachment [Not Recovered/Not Resolved]
  - Drug-induced liver injury [Recovering/Resolving]
  - Hepatic function abnormal [Recovering/Resolving]
  - Drug titration error [Unknown]

NARRATIVE: CASE EVENT DATE: 20210520
